FAERS Safety Report 5220021-9 (Version None)
Quarter: 2007Q1

REPORT INFORMATION
  Report Type: 
  Country: None (occurrence: None)
  Receive Date: 20070124
  Receipt Date: 20070124
  Transmission Date: 20070707
  Serious: Yes (Other)
  Sender: FDA-Public Use
  Company Number: None

PATIENT
  Age: 61 Year
  Sex: Male
  Weight: 82.6 kg

DRUGS (16)
  1. COLESTIPOL HYDROCHLORIDE [Suspect]
  2. FLUOXETINE HCL [Concomitant]
  3. PRAZOSIN HCL [Concomitant]
  4. DIAZEPAM [Concomitant]
  5. CEPHALEXIN [Concomitant]
  6. LISINOPRIL [Concomitant]
  7. TRAZODONE HCL [Concomitant]
  8. MULTIVITAMIN [Concomitant]
  9. ASPIRIN [Concomitant]
  10. CLOPIDOGREL BISULFATE [Concomitant]
  11. SIMVASTATIN [Concomitant]
  12. CLOBETASOL PROPIONATE [Concomitant]
  13. METOPROLOL TARTRATE [Concomitant]
  14. IPRATROPIUM BROMIDE [Concomitant]
  15. NITROGLYCERIN [Concomitant]
  16. OMEPRAZOLE [Concomitant]

REACTIONS (1)
  - ABDOMINAL DISCOMFORT [None]
